FAERS Safety Report 7152331-2 (Version None)
Quarter: 2010Q4

REPORT INFORMATION
  Report Type: 
  Country: None (occurrence: None)
  Receive Date: 20101209
  Receipt Date: 20101209
  Transmission Date: 20110411
  Serious: Yes (Life-Threatening, Hospitalization)
  Sender: FDA-Public Use
  Company Number: None

PATIENT
  Sex: Female
  Weight: 61.2356 kg

DRUGS (1)
  1. DARVOCET-N 100 [Suspect]
     Indication: KNEE ARTHROPLASTY
     Dosage: 1 TABLET TWICE A DAY
     Dates: start: 20000101, end: 20100101

REACTIONS (3)
  - ATRIAL FIBRILLATION [None]
  - CARDIAC ARREST [None]
  - HEART RATE IRREGULAR [None]
